FAERS Safety Report 11455647 (Version 1)
Quarter: 2015Q3

REPORT INFORMATION
  Report Type: Spontaneous
  Country: US (occurrence: US)
  Receive Date: 20150903
  Receipt Date: 20150903
  Transmission Date: 20151125
  Serious: No
  Sender: FDA-Public Use
  Company Number: US-BEH-2014046146

PATIENT
  Sex: Female
  Weight: 54 kg

DRUGS (20)
  1. DIPHENHYDRAMINE. [Concomitant]
     Active Substance: DIPHENHYDRAMINE
  2. LMX [Concomitant]
     Active Substance: LIDOCAINE
  3. OXYGEN. [Concomitant]
     Active Substance: OXYGEN
  4. COREG [Concomitant]
     Active Substance: CARVEDILOL
  5. ATIVAN [Concomitant]
     Active Substance: LORAZEPAM
  6. ZEMAIRA [Suspect]
     Active Substance: .ALPHA.1-PROTEINASE INHIBITOR HUMAN
     Indication: ALPHA-1 ANTI-TRYPSIN DEFICIENCY
     Route: 042
  7. METAMUCIL [Concomitant]
     Active Substance: PLANTAGO SEED
  8. FISH OIL [Concomitant]
     Active Substance: FISH OIL
  9. ADVAIR HFA [Concomitant]
     Active Substance: FLUTICASONE PROPIONATE\SALMETEROL XINAFOATE
  10. SPIRIVA [Concomitant]
     Active Substance: TIOTROPIUM BROMIDE MONOHYDRATE
  11. ASPIRIN. [Concomitant]
     Active Substance: ASPIRIN
  12. EPIPEN [Concomitant]
     Active Substance: EPINEPHRINE
  13. PREDNISONE. [Concomitant]
     Active Substance: PREDNISONE
  14. COZAAR [Concomitant]
     Active Substance: LOSARTAN POTASSIUM
  15. CRESTOR [Concomitant]
     Active Substance: ROSUVASTATIN CALCIUM
  16. ALLEGRA [Concomitant]
     Active Substance: FEXOFENADINE HYDROCHLORIDE
  17. SODIUM CHLORIDE. [Concomitant]
     Active Substance: SODIUM CHLORIDE
  18. CLARITHROMYCIN. [Concomitant]
     Active Substance: CLARITHROMYCIN
  19. AZITHROMYCIN [Concomitant]
     Active Substance: AZITHROMYCIN ANHYDROUS
  20. ACETYLCYSTEINE. [Concomitant]
     Active Substance: ACETYLCYSTEINE

REACTIONS (1)
  - Back pain [Unknown]
